FAERS Safety Report 6803414-5 (Version None)
Quarter: 2010Q2

REPORT INFORMATION
  Report Type: 
  Country: None (occurrence: None)
  Receive Date: 20100628
  Receipt Date: 20100615
  Transmission Date: 20101027
  Serious: Yes (Hospitalization)
  Sender: FDA-Public Use
  Company Number: US-ROCHE-710538

PATIENT
  Age: 76 Year
  Sex: Male

DRUGS (3)
  1. ROCEPHIN [Suspect]
     Indication: DRUG USE FOR UNKNOWN INDICATION
     Dosage: FORM:INFUSION
     Route: 042
     Dates: start: 20091226, end: 20091231
  2. LIPITOR [Concomitant]
     Dates: start: 20030101
  3. VALSARTAN [Concomitant]
     Indication: HYPERTENSION
     Dates: start: 20030101

REACTIONS (6)
  - ADVERSE DRUG REACTION [None]
  - ASTHMA [None]
  - BLOOD PRESSURE DECREASED [None]
  - DEHYDRATION [None]
  - HYPOGLYCAEMIA [None]
  - PNEUMONITIS [None]
